FAERS Safety Report 13941600 (Version 4)
Quarter: 2018Q4

REPORT INFORMATION
  Report Type: Report from Study
  Country: US (occurrence: US)
  Receive Date: 20170906
  Receipt Date: 20181217
  Transmission Date: 20190204
  Serious: Yes (Other)
  Sender: FDA-Public Use
  Company Number: US-ACTELION-A-NJ2017-158916

PATIENT
  Age: 70 Year
  Sex: Female
  Weight: 83.9 kg

DRUGS (4)
  1. TRACLEER [Suspect]
     Active Substance: BOSENTAN
     Dosage: 125 MG, BID
     Route: 048
     Dates: start: 201707, end: 201710
  2. AMLODIPINE [Concomitant]
     Active Substance: AMLODIPINE BESYLATE
  3. TRACLEER [Suspect]
     Active Substance: BOSENTAN
     Indication: PULMONARY ARTERIAL HYPERTENSION
     Dosage: 62.5 MG, BID
     Route: 048
     Dates: start: 201706, end: 201707
  4. SILDENAFIL. [Concomitant]
     Active Substance: SILDENAFIL

REACTIONS (10)
  - Ocular icterus [Unknown]
  - Blood alkaline phosphatase increased [Recovered/Resolved]
  - Eye pain [Unknown]
  - Adverse event [Unknown]
  - Liver function test increased [Recovered/Resolved]
  - Medical device removal [Unknown]
  - Vision blurred [Unknown]
  - Visual impairment [Unknown]
  - Jaundice [Unknown]
  - Eye irritation [Unknown]

NARRATIVE: CASE EVENT DATE: 201708
